FAERS Safety Report 8694922 (Version 2)
Quarter: 2012Q4

REPORT INFORMATION
  Report Type: 
  Country: DE (occurrence: DE)
  Receive Date: 20120731
  Receipt Date: 20120828
  Transmission Date: 20130627
  Serious: Yes (Hospitalization)
  Sender: FDA-Public Use
  Company Number: PHHO2012DE006178

PATIENT
  Age: 65 Year
  Sex: Female
  Weight: 55 kg

DRUGS (7)
  1. METHOTREXATE [Suspect]
  2. AMN107 [Suspect]
     Indication: ACUTE LYMPHOCYTIC LEUKAEMIA
     Dosage: 400 mg, BID
     Route: 048
     Dates: start: 20120214, end: 20120414
  3. NILOTINIB [Suspect]
     Dosage: 400 mg, BID
     Route: 048
     Dates: start: 20120416
  4. ASPARAGINASE [Suspect]
  5. CYTARABINE [Suspect]
  6. ACYCLOVIR [Concomitant]
     Indication: PROPHYLAXIS
     Dosage: 800 mg, QD
     Route: 048
     Dates: start: 20120309
  7. CO-TRIMOXAZOLE [Concomitant]
     Indication: PROPHYLAXIS
     Dosage: 960 mg, QW3
     Route: 048
     Dates: start: 20120309

REACTIONS (5)
  - Vomiting [Not Recovered/Not Resolved]
  - Abdominal pain [Not Recovered/Not Resolved]
  - General physical health deterioration [Recovered/Resolved]
  - Pyrexia [Not Recovered/Not Resolved]
  - Malaise [Recovered/Resolved]
